FAERS Safety Report 24350877 (Version 1)
Quarter: 2024Q3

REPORT INFORMATION
  Report Type: Spontaneous
  Country: US (occurrence: None)
  Receive Date: 20240920
  Receipt Date: 20240920
  Transmission Date: 20241016
  Serious: Yes (Disabling, Other)
  Sender: Public
  Company Number: None

PATIENT
  Age: 39 Year
  Sex: Male
  Weight: 92.25 kg

DRUGS (5)
  1. FINASTERIDE [Suspect]
     Active Substance: FINASTERIDE
     Indication: Alopecia
  2. OMEGA FISH OILS [Concomitant]
  3. ZINC [Concomitant]
     Active Substance: ZINC
  4. MAGNESIUM [Concomitant]
     Active Substance: MAGNESIUM
  5. VITAMIN B12 [Concomitant]
     Active Substance: CYANOCOBALAMIN

REACTIONS (8)
  - Testicular pain [None]
  - Erectile dysfunction [None]
  - Therapy cessation [None]
  - Major depression [None]
  - Irritability [None]
  - Prostatic pain [None]
  - Suicidal ideation [None]
  - Loss of libido [None]

NARRATIVE: CASE EVENT DATE: 20180901
